FAERS Safety Report 14758086 (Version 2)
Quarter: 2018Q2

REPORT INFORMATION
  Report Type: Report from Study
  Country: None (occurrence: ZA)
  Receive Date: 20180413
  Receipt Date: 20180514
  Transmission Date: 20180711
  Serious: Yes (Death)
  Sender: FDA-Public Use
  Company Number: ZA-ABBVIE-18K-143-2322376-00

PATIENT
  Sex: Male

DRUGS (5)
  1. PREXCEWPUS [Concomitant]
     Indication: HYPERTENSION
     Route: 048
     Dates: start: 2017, end: 20180402
  2. HUMIRA [Suspect]
     Active Substance: ADALIMUMAB
     Indication: PRODUCT USED FOR UNKNOWN INDICATION
     Route: 058
  3. SOTALEXOEL [Concomitant]
     Indication: HYPERTENSION
     Dosage: FREQUENCY TEXT: BIDAILY
     Route: 048
     Dates: start: 2014, end: 20180402
  4. IDOFLOW [Concomitant]
     Indication: PRODUCT USED FOR UNKNOWN INDICATION
     Dates: start: 2010
  5. METHOTREXATE. [Concomitant]
     Active Substance: METHOTREXATE
     Indication: RHEUMATOID ARTHRITIS
     Route: 048
     Dates: start: 2006, end: 20180402

REACTIONS (1)
  - Chest pain [Fatal]
